FAERS Safety Report 11766821 (Version 4)
Quarter: 2018Q1

REPORT INFORMATION
  Report Type: Report from Study
  Country: US (occurrence: US)
  Receive Date: 20151123
  Receipt Date: 20180214
  Transmission Date: 20180508
  Serious: Yes (Other)
  Sender: FDA-Public Use
  Company Number: US-ROCHE-1664615

PATIENT
  Age: 62 Year

DRUGS (4)
  1. RITUXIMAB. [Suspect]
     Active Substance: RITUXIMAB
     Dosage: MAINTENANCE PHASE: ONCE EVERY OTHER CYCLE.
     Route: 042
  2. LENALIDOMIDE [Suspect]
     Active Substance: LENALIDOMIDE
     Indication: MANTLE CELL LYMPHOMA
     Dosage: INDUCTION PHASE: 20-25MG/DAY ON DAYS 1-21 OF A 28-DAY CYCLE FOR A TOTAL OF 12 CYCLES (CREATININE CLE
     Route: 065
  3. LENALIDOMIDE [Suspect]
     Active Substance: LENALIDOMIDE
     Dosage: MAINTENANCE PHASE: 10-15MG/DAY ON DAYS 1-21 OF A 28-DAY CYCLE FOR A TOTAL OF 12 CYCLES (CREATININE C
     Route: 065
  4. RITUXIMAB. [Suspect]
     Active Substance: RITUXIMAB
     Indication: MANTLE CELL LYMPHOMA
     Dosage: INDUCTION PHASE: WEEKLY X 4 DURING CYCLE 1, THEN ONCE EVERY OTHER CYCLE, FOR A TOTAL OF 9 DOSES.
     Route: 042

REACTIONS (1)
  - Bowen^s disease [Unknown]
